FAERS Safety Report 9225626 (Version 1)
Quarter: 2013Q2

REPORT INFORMATION
  Report Type: Other
  Country: GB (occurrence: GB)
  Receive Date: 20130411
  Receipt Date: 20130411
  Transmission Date: 20140414
  Serious: Yes (Other)
  Sender: FDA-Public Use
  Company Number: GB-WATSON-2013-05647

PATIENT
  Age: 40 Year
  Sex: Female
  Weight: 68 kg

DRUGS (1)
  1. CITALOPRAM (UNKNOWN) (CITALOPRAM) [Suspect]
     Indication: DEPRESSION
     Dosage: UNK MG, UNK, DOSE REDUCED BY 5 MG ONE LESS DAY PER WEEK FOR 2 MONTHS. THEN TWO LESS PER WEEK FOR 2 M
     Route: 048

REACTIONS (4)
  - Head discomfort [Recovered/Resolved]
  - Amnesia [Recovered/Resolved]
  - Disturbance in attention [Recovered/Resolved]
  - Drug withdrawal syndrome [Recovered/Resolved]
